FAERS Safety Report 22586202 (Version 1)
Quarter: 2023Q2

REPORT INFORMATION
  Report Type: Spontaneous
  Country: US (occurrence: US)
  Receive Date: 20230610
  Receipt Date: 20230610
  Transmission Date: 20230721
  Serious: Yes (Hospitalization)
  Sender: FDA-Public Use
  Company Number: US-drreddys-LIT/USA/23/0166590

PATIENT
  Age: 29 Year
  Sex: Male

DRUGS (1)
  1. MERCAPTOPURINE [Suspect]
     Active Substance: MERCAPTOPURINE
     Indication: Crohn^s disease

REACTIONS (4)
  - Nodular regenerative hyperplasia [Recovering/Resolving]
  - Stoma site haemorrhage [Recovered/Resolved]
  - Stomal varices [Recovered/Resolved]
  - Product use in unapproved indication [Unknown]
